FAERS Safety Report 6816432-8 (Version None)
Quarter: 2010Q3

REPORT INFORMATION
  Report Type: 
  Country: None (occurrence: None)
  Receive Date: 20100705
  Receipt Date: 20100628
  Transmission Date: 20110219
  Serious: Yes (Death, Hospitalization)
  Sender: FDA-Public Use
  Company Number: DE-BRISTOL-MYERS SQUIBB COMPANY-15112782

PATIENT
  Age: 67 Year

DRUGS (10)
  1. CETUXIMAB [Suspect]
     Indication: HEAD AND NECK CANCER
     Dosage: -27APR2010 27APR2010-ONG RECENT INF:4MAY2010, 7DAYS DOSE REDUCED TO 480MG
     Route: 042
     Dates: start: 20100316, end: 20100504
  2. CARBOPLATIN [Suspect]
     Indication: HEAD AND NECK CANCER
     Dosage: -27APR2010(41 D) RECENT INF:4MAY2010,7 DAYS DOSE REDUCED TO 187MG
     Route: 042
     Dates: start: 20100316, end: 20100504
  3. DOCETAXEL [Suspect]
     Indication: HEAD AND NECK CANCER
     Dosage: -27APR2010 DOSE REDUCED TO 56 MG 27APR2010-4MAY10,7DAYS
     Route: 042
     Dates: start: 20100316, end: 20100504
  4. ASPIRIN [Concomitant]
  5. RAMIPRIL [Concomitant]
  6. FUROSEMIDE [Concomitant]
     Dosage: FUROSEMIDE 40MG 1.5 TABLETS DAILY
  7. SIMVASTIN [Concomitant]
  8. PANTOZOL [Concomitant]
  9. PASPERTIN [Concomitant]
  10. TAZOBAC [Concomitant]

REACTIONS (4)
  - DEVICE RELATED SEPSIS [None]
  - GENERAL PHYSICAL HEALTH DETERIORATION [None]
  - PNEUMONIA [None]
  - TUMOUR HAEMORRHAGE [None]
